FAERS Safety Report 10022365 (Version 1)
Quarter: 2014Q1

REPORT INFORMATION
  Report Type: Spontaneous
  Country: IL (occurrence: IL)
  Receive Date: 20140319
  Receipt Date: 20140319
  Transmission Date: 20141002
  Serious: Yes (Other)
  Sender: FDA-Public Use
  Company Number: IL-VERTEX PHARMACEUTICALS INC-2014-001371

PATIENT
  Sex: Female

DRUGS (1)
  1. INCIVO [Suspect]
     Indication: PRODUCT USED FOR UNKNOWN INDICATION
     Route: 048

REACTIONS (3)
  - Infection [Unknown]
  - Blood creatinine increased [Unknown]
  - Urine output decreased [Unknown]
